FAERS Safety Report 8230664-6 (Version None)
Quarter: 2012Q1

REPORT INFORMATION
  Report Type: 
  Country: None (occurrence: None)
  Receive Date: 20120323
  Receipt Date: 20120319
  Transmission Date: 20120608
  Serious: Yes (Other)
  Sender: FDA-Public Use
  Company Number: JP-GENZYME-FLUD-1001449

PATIENT

DRUGS (2)
  1. FLUDARA [Suspect]
     Indication: PERIPHERAL SENSORIMOTOR NEUROPATHY
     Dosage: UNK, FOUR CYCLES
     Route: 065
  2. RITUXIMAB [Suspect]
     Indication: PERIPHERAL SENSORIMOTOR NEUROPATHY
     Dosage: UNK, FOUR CYCLES
     Route: 065

REACTIONS (3)
  - LEUKOPENIA [None]
  - NAUSEA [None]
  - HYPOAESTHESIA [None]
